FAERS Safety Report 8786000 (Version 1)
Quarter: 2012Q4

REPORT INFORMATION
  Report Type: Report from Study
  Country: US (occurrence: US)
  Receive Date: 20120914
  Receipt Date: 20120914
  Transmission Date: 20130627
  Serious: No
  Sender: FDA-Public Use
  Company Number: US-VERTEX PHARMACEUTICAL INC.-AE-2012-011591

PATIENT
  Age: 56 Year
  Sex: Female

DRUGS (8)
  1. INCIVEK [Suspect]
     Indication: HEPATITIS C
     Route: 048
  2. PEGASYS PROCLICK [Concomitant]
     Indication: HEPATITIS C
     Route: 058
  3. RIBAPAK [Concomitant]
     Indication: HEPATITIS C
  4. MORPHINE SUL [Concomitant]
  5. WELLBUTRIN [Concomitant]
  6. FISH OIL [Concomitant]
  7. CALCIUM+ D3 [Concomitant]
  8. MULTIVITAMIN TAB WOMENS [Concomitant]

REACTIONS (3)
  - Headache [Unknown]
  - Vomiting [Unknown]
  - Nausea [Unknown]
